FAERS Safety Report 14843024 (Version 1)
Quarter: 2018Q2

REPORT INFORMATION
  Report Type: Spontaneous
  Country: US (occurrence: US)
  Receive Date: 20180503
  Receipt Date: 20180503
  Transmission Date: 20180711
  Serious: No
  Sender: FDA-Public Use
  Company Number: US-GLAXOSMITHKLINE-US2018064023

PATIENT
  Age: 92 Year
  Sex: Male

DRUGS (1)
  1. FLONASE ALLERGY RELIEF [Suspect]
     Active Substance: FLUTICASONE PROPIONATE
     Indication: NASAL CONGESTION
     Dosage: UNK
     Route: 045
     Dates: start: 20180309

REACTIONS (6)
  - Vision blurred [Not Recovered/Not Resolved]
  - Epistaxis [Not Recovered/Not Resolved]
  - Drug administered to patient of inappropriate age [Not Recovered/Not Resolved]
  - Nasal pruritus [Not Recovered/Not Resolved]
  - Nasal discomfort [Not Recovered/Not Resolved]
  - Dry mouth [Not Recovered/Not Resolved]
